FAERS Safety Report 16168597 (Version 1)
Quarter: 2019Q2

REPORT INFORMATION
  Report Type: Spontaneous
  Country: US (occurrence: US)
  Receive Date: 20190304
  Receipt Date: 20190304
  Transmission Date: 20190711
  Serious: No
  Sender: FDA-Public Use
  Company Number: None

PATIENT
  Age: 54 Year
  Sex: Female
  Weight: 78.47 kg

DRUGS (4)
  1. REPATHA [Suspect]
     Active Substance: EVOLOCUMAB
     Indication: SCHISTOSOMIASIS
     Dosage: ?          OTHER FREQUENCY:MONTHLY9MINUTES ;  BY USING THE SINGLE -USE ON-BODY INFUSER?
     Route: 058
     Dates: start: 201811
  2. REPATHA [Suspect]
     Active Substance: EVOLOCUMAB
     Indication: TYPE V HYPERLIPIDAEMIA
     Dosage: ?          OTHER FREQUENCY:MONTHLY9MINUTES ;  BY USING THE SINGLE -USE ON-BODY INFUSER?
     Route: 058
     Dates: start: 201811
  3. REPATHA [Suspect]
     Active Substance: EVOLOCUMAB
     Indication: BONE CANCER
     Dosage: ?          OTHER FREQUENCY:MONTHLY9MINUTES ;  BY USING THE SINGLE -USE ON-BODY INFUSER?
     Route: 058
     Dates: start: 201811
  4. REPATHA [Suspect]
     Active Substance: EVOLOCUMAB
     Indication: EXTERNAL EAR NEOPLASM MALIGNANT
     Dosage: ?          OTHER FREQUENCY:MONTHLY9MINUTES ;  BY USING THE SINGLE -USE ON-BODY INFUSER?
     Route: 058
     Dates: start: 201811

REACTIONS (1)
  - Fatigue [None]
